FAERS Safety Report 12908971 (Version 1)
Quarter: 2016Q4

REPORT INFORMATION
  Report Type: Spontaneous
  Country: US (occurrence: US)
  Receive Date: 20161103
  Receipt Date: 20161103
  Transmission Date: 20170207
  Serious: No
  Sender: FDA-Public Use
  Company Number: US-JAZZ-2016-US-016744

PATIENT
  Sex: Female

DRUGS (32)
  1. CLINDAMYCIN HCL [Concomitant]
     Active Substance: CLINDAMYCIN HYDROCHLORIDE
  2. NUVIGIL [Concomitant]
     Active Substance: ARMODAFINIL
  3. RITALIN [Concomitant]
     Active Substance: METHYLPHENIDATE HYDROCHLORIDE
  4. VITAMIN B COMPLEX [Concomitant]
     Active Substance: CYANOCOBALAMIN\DEXPANTHENOL\NIACINAMIDE\PYRIDOXINE HYDROCHLORIDE\RIBOFLAVIN 5^-PHOSPHATE SODIUM\THIAMINE HYDROCHLORIDE\VITAMIN B COMPLEX
  5. FISH OIL [Concomitant]
     Active Substance: FISH OIL
  6. MINOCYCLINE HCL [Concomitant]
     Active Substance: MINOCYCLINE HYDROCHLORIDE
  7. GELNIQUE [Concomitant]
     Active Substance: OXYBUTYNIN
  8. RESTASIS [Concomitant]
     Active Substance: CYCLOSPORINE
  9. XYREM [Suspect]
     Active Substance: SODIUM OXYBATE
     Dosage: DOSE ADJUSTMENTS
     Dates: start: 200809, end: 201004
  10. XYREM [Suspect]
     Active Substance: SODIUM OXYBATE
     Dosage: 3 G, BID
     Route: 048
     Dates: start: 201004
  11. TERBINAFINE HCL [Concomitant]
     Active Substance: TERBINAFINE HYDROCHLORIDE
  12. MUCINEX [Concomitant]
     Active Substance: GUAIFENESIN
  13. NEXIUM [Concomitant]
     Active Substance: ESOMEPRAZOLE MAGNESIUM
  14. VAGIFEM [Concomitant]
     Active Substance: ESTRADIOL
  15. WELLBUTRIN [Concomitant]
     Active Substance: BUPROPION HYDROCHLORIDE
  16. XYREM [Suspect]
     Active Substance: SODIUM OXYBATE
     Indication: NARCOLEPSY
     Dosage: 2.25 G, BID
     Route: 048
     Dates: start: 200808, end: 200809
  17. MINOCYCLINE [Concomitant]
     Active Substance: MINOCYCLINE\MINOCYCLINE HYDROCHLORIDE
  18. ESTRADIOL. [Concomitant]
     Active Substance: ESTRADIOL
  19. CALCIUM +D [Concomitant]
     Active Substance: CALCIUM\VITAMIN D
  20. FLUTICASONE PROPIONATE. [Concomitant]
     Active Substance: FLUTICASONE PROPIONATE
  21. CICLESONIDE [Concomitant]
     Active Substance: CICLESONIDE
  22. SKELAXIN [Concomitant]
     Active Substance: METAXALONE
  23. TRIAMTERENE AND HYDROCHLOROTHIAZIDE [Concomitant]
     Active Substance: HYDROCHLOROTHIAZIDE\TRIAMTERENE
  24. CIPRO [Concomitant]
     Active Substance: CIPROFLOXACIN HYDROCHLORIDE
  25. CRANBERRY CONCENTRATE [Concomitant]
     Active Substance: CRANBERRY CONCENTRATE
  26. CARAFATE [Concomitant]
     Active Substance: SUCRALFATE
  27. MONTELUKAST SODIUM. [Concomitant]
     Active Substance: MONTELUKAST SODIUM
  28. TAMSULOSIN HCL [Concomitant]
     Active Substance: TAMSULOSIN
  29. CELEBREX [Concomitant]
     Active Substance: CELECOXIB
  30. MYRBETRIQ [Concomitant]
     Active Substance: MIRABEGRON
  31. BUPROPION HCL [Concomitant]
     Active Substance: BUPROPION HYDROCHLORIDE
  32. GLUCOSAMINE AND CHONDROITIN [Concomitant]
     Active Substance: CHONDROITIN SULFATE (BOVINE)\GLUCOSAMINE HYDROCHLORIDE

REACTIONS (5)
  - Peripheral swelling [Unknown]
  - Nasal dryness [Unknown]
  - Somnolence [Unknown]
  - Joint swelling [Unknown]
  - Fatigue [Unknown]
